FAERS Safety Report 25048647 (Version 2)
Quarter: 2025Q1

REPORT INFORMATION
  Report Type: Spontaneous
  Country: US (occurrence: US)
  Receive Date: 20250307
  Receipt Date: 20250321
  Transmission Date: 20250409
  Serious: Yes (Hospitalization, Other)
  Sender: BRISTOL-MYERS SQUIBB COMPANY
  Company Number: US-BRISTOL-MYERS SQUIBB COMPANY-2025-032474

PATIENT
  Age: 74 Year
  Sex: Male
  Weight: 85.28 kg

DRUGS (28)
  1. POMALYST [Suspect]
     Active Substance: POMALIDOMIDE
     Indication: Plasma cell myeloma
     Dosage: ONCE DAILY FOR 14 DAYS ON THEN 7 DAYS OFF EACH CYCLE
     Route: 048
  2. AMLODIPINE [Concomitant]
     Active Substance: AMLODIPINE BESYLATE
     Indication: Product used for unknown indication
  3. ASPIRIN [Concomitant]
     Active Substance: ASPIRIN
     Indication: Product used for unknown indication
  4. CEFDINIR [Concomitant]
     Active Substance: CEFDINIR
     Indication: Product used for unknown indication
  5. CEPHALEXIN [Concomitant]
     Active Substance: CEPHALEXIN
     Indication: Product used for unknown indication
  6. DARZALEX [Concomitant]
     Active Substance: DARATUMUMAB
     Indication: Product used for unknown indication
  7. DOXYCYCLINE HYCLATE [Concomitant]
     Active Substance: DOXYCYCLINE HYCLATE
     Indication: Product used for unknown indication
  8. DRONABINOL [Concomitant]
     Active Substance: DRONABINOL
     Indication: Product used for unknown indication
  9. EZETIMIBE [Concomitant]
     Active Substance: EZETIMIBE
     Indication: Product used for unknown indication
  10. FENTANYL [Concomitant]
     Active Substance: FENTANYL
     Indication: Product used for unknown indication
  11. FUROSEMIDE [Concomitant]
     Active Substance: FUROSEMIDE
     Indication: Product used for unknown indication
  12. ISOSORBIDE MONONITRATE [Concomitant]
     Active Substance: ISOSORBIDE MONONITRATE
     Indication: Product used for unknown indication
  13. LACTULOSE [Concomitant]
     Active Substance: LACTULOSE
     Indication: Product used for unknown indication
  14. LOPERAMIDE [Concomitant]
     Active Substance: LOPERAMIDE
     Indication: Product used for unknown indication
  15. MAGNESIUM OXIDE [Concomitant]
     Active Substance: MAGNESIUM OXIDE
     Indication: Product used for unknown indication
  16. METOPROLOL TARTRATE [Concomitant]
     Active Substance: METOPROLOL TARTRATE
     Indication: Product used for unknown indication
  17. NALOXEGOL [Concomitant]
     Active Substance: NALOXEGOL
     Indication: Product used for unknown indication
  18. NALOXONE [Concomitant]
     Active Substance: NALOXONE
     Indication: Product used for unknown indication
  19. NITROGLYCERIN [Concomitant]
     Active Substance: NITROGLYCERIN
     Indication: Product used for unknown indication
  20. ONDANSETRON [Concomitant]
     Active Substance: ONDANSETRON
     Indication: Product used for unknown indication
  21. OXYCODONE AND ACETAMINOPHEN [Concomitant]
     Active Substance: ACETAMINOPHEN\OXYCODONE HYDROCHLORIDE
     Indication: Product used for unknown indication
  22. POLYETHYLENE GLYCOL 3350 [Concomitant]
     Active Substance: POLYETHYLENE GLYCOL 3350
     Indication: Product used for unknown indication
  23. PREPARATION H RECTAL [Concomitant]
     Indication: Product used for unknown indication
  24. TAMIFLU [Concomitant]
     Active Substance: OSELTAMIVIR PHOSPHATE
     Indication: Product used for unknown indication
  25. DOCUSATE SODIUM\SENNOSIDES [Concomitant]
     Active Substance: DOCUSATE SODIUM\SENNOSIDES
     Indication: Product used for unknown indication
  26. OXYBUTYNIN [Concomitant]
     Active Substance: OXYBUTYNIN
     Indication: Product used for unknown indication
  27. PHENAZOPYRIDINE [Concomitant]
     Active Substance: PHENAZOPYRIDINE
     Indication: Product used for unknown indication
  28. DOCUSATE SODIUM [Concomitant]
     Active Substance: DOCUSATE SODIUM
     Indication: Product used for unknown indication

REACTIONS (1)
  - Urinary bladder haemorrhage [Unknown]
